FAERS Safety Report 8134288-0 (Version None)
Quarter: 2012Q1

REPORT INFORMATION
  Report Type: 
  Country: None (occurrence: None)
  Receive Date: 20120208
  Receipt Date: 20120124
  Transmission Date: 20120608
  Serious: Yes (Hospitalization)
  Sender: FDA-Public Use
  Company Number: USW201201-000003

PATIENT
  Age: 75 Year
  Sex: Male

DRUGS (10)
  1. LEVODOPA [Concomitant]
  2. GABAPENTIN [Concomitant]
  3. FINASTERIDE [Concomitant]
  4. ALLOPURINOL [Concomitant]
  5. ATROPINE [Concomitant]
  6. APOKYN [Suspect]
     Indication: DYSTONIA
     Dosage: 7 MG/HOUR, SUBCUTANEOUS; 8 MG/HOUR; 7 MG/HOUR
     Route: 058
     Dates: start: 20110101, end: 20110101
  7. APOKYN [Suspect]
     Indication: DYSKINESIA
     Dosage: 7 MG/HOUR, SUBCUTANEOUS; 8 MG/HOUR; 7 MG/HOUR
     Route: 058
     Dates: start: 20110101, end: 20110101
  8. APOKYN [Suspect]
     Indication: PARKINSON'S DISEASE
     Dosage: 7 MG/HOUR, SUBCUTANEOUS; 8 MG/HOUR; 7 MG/HOUR
     Route: 058
     Dates: start: 20110101, end: 20110101
  9. TAMSULOSIN HCL [Concomitant]
  10. AMITRIPTYLINE HCL [Concomitant]

REACTIONS (4)
  - MALABSORPTION FROM INJECTION SITE [None]
  - SOMNOLENCE [None]
  - OVERDOSE [None]
  - FALL [None]
